FAERS Safety Report 18106643 (Version 2)
Quarter: 2020Q3

REPORT INFORMATION
  Report Type: Spontaneous
  Country: US (occurrence: US)
  Receive Date: 20200804
  Receipt Date: 20200829
  Transmission Date: 20201103
  Serious: No
  Sender: FDA-Public Use
  Company Number: US-ASTRAZENECA-2020SE94247

PATIENT
  Sex: Male
  Weight: 108.9 kg

DRUGS (2)
  1. BYDUREON [Suspect]
     Active Substance: EXENATIDE
     Indication: DIABETES MELLITUS INADEQUATE CONTROL
     Route: 065
     Dates: start: 201906, end: 202006
  2. BYDUREON BCISE [Suspect]
     Active Substance: EXENATIDE
     Indication: DIABETES MELLITUS INADEQUATE CONTROL
     Route: 065
     Dates: start: 202006

REACTIONS (3)
  - Device issue [Not Recovered/Not Resolved]
  - Injection site nodule [Not Recovered/Not Resolved]
  - Nausea [Not Recovered/Not Resolved]
